FAERS Safety Report 7572997-2 (Version None)
Quarter: 2011Q2

REPORT INFORMATION
  Report Type: 
  Country: None (occurrence: None)
  Receive Date: 20110627
  Receipt Date: 20110620
  Transmission Date: 20111010
  Serious: No
  Sender: FDA-Public Use
  Company Number: US-JNJFOC-20110609769

PATIENT
  Sex: Male
  Weight: 86.18 kg

DRUGS (2)
  1. DURAGESIC-100 [Suspect]
     Indication: BACK PAIN
     Dosage: (100 UG/HR + 100 UG/HR)
     Route: 062
     Dates: start: 20100601, end: 20100601
  2. DURAGESIC-100 [Suspect]
     Route: 062
     Dates: start: 20100601

REACTIONS (2)
  - WRONG TECHNIQUE IN DRUG USAGE PROCESS [None]
  - THERAPEUTIC RESPONSE DECREASED [None]
